FAERS Safety Report 10458155 (Version 3)
Quarter: 2014Q4

REPORT INFORMATION
  Report Type: Report from Study
  Country: US (occurrence: US)
  Receive Date: 20140917
  Receipt Date: 20141023
  Transmission Date: 20150528
  Serious: Yes (Other)
  Sender: FDA-Public Use
  Company Number: US-BEH-2014045119

PATIENT
  Sex: Female
  Weight: .95 kg

DRUGS (4)
  1. ALBUMINAR-5 [Suspect]
     Active Substance: ALBUMIN (HUMAN)
     Route: 064
     Dates: start: 20140717, end: 20140717
  2. ALBUMINAR-5 [Suspect]
     Active Substance: ALBUMIN (HUMAN)
     Route: 064
     Dates: start: 20140814, end: 20140814
  3. ALBUMINAR-5 [Suspect]
     Active Substance: ALBUMIN (HUMAN)
     Route: 064
     Dates: start: 20140612, end: 20140612
  4. CYTOGAM [Suspect]
     Active Substance: HUMAN CYTOMEGALOVIRUS IMMUNE GLOBULIN

REACTIONS (2)
  - Premature baby [Recovered/Resolved]
  - Foetal exposure during pregnancy [Recovered/Resolved]

NARRATIVE: CASE EVENT DATE: 20140612
